FAERS Safety Report 10304685 (Version 2)
Quarter: 2014Q3

REPORT INFORMATION
  Report Type: Spontaneous
  Country: US (occurrence: US)
  Receive Date: 20140715
  Receipt Date: 20140807
  Transmission Date: 20150326
  Serious: No
  Sender: FDA-Public Use
  Company Number: US-AMGEN INC.-USASP2014051706

PATIENT
  Age: 61 Year
  Sex: Female

DRUGS (1)
  1. ENBREL [Suspect]
     Active Substance: ETANERCEPT
     Indication: PSORIASIS
     Dosage: 50 MG, QWK
     Route: 065
     Dates: start: 20130226

REACTIONS (8)
  - Arthralgia [Unknown]
  - Oral herpes [Not Recovered/Not Resolved]
  - Knee deformity [Unknown]
  - Throat irritation [Not Recovered/Not Resolved]
  - Gingival pain [Not Recovered/Not Resolved]
  - Sunburn [Not Recovered/Not Resolved]
  - Joint effusion [Unknown]
  - Arthropathy [Unknown]

NARRATIVE: CASE EVENT DATE: 20140705
